FAERS Safety Report 5322885-7 (Version None)
Quarter: 2007Q2

REPORT INFORMATION
  Report Type: 
  Country: None (occurrence: None)
  Receive Date: 20070511
  Receipt Date: 20070503
  Transmission Date: 20071010
  Serious: Yes (Other)
  Sender: FDA-Public Use
  Company Number: US-PFIZER INC-2007036336

PATIENT
  Age: 75 Year
  Sex: Male
  Weight: 102.1 kg

DRUGS (1)
  1. LIPITOR [Suspect]

REACTIONS (10)
  - ACTIVITIES OF DAILY LIVING IMPAIRED [None]
  - ARTHRALGIA [None]
  - CHILLS [None]
  - FATIGUE [None]
  - MALAISE [None]
  - MUSCLE DISORDER [None]
  - MYALGIA [None]
  - MYOPATHY [None]
  - PAIN [None]
  - PARAESTHESIA [None]
